FAERS Safety Report 8359916-6 (Version None)
Quarter: 2012Q2

REPORT INFORMATION
  Report Type: 
  Country: None (occurrence: None)
  Receive Date: 20120515
  Receipt Date: 20120508
  Transmission Date: 20120825
  Serious: Yes (Hospitalization)
  Sender: FDA-Public Use
  Company Number: ES-PFIZER INC-2012112941

PATIENT
  Age: 80 Year
  Sex: Female

DRUGS (6)
  1. FUROSEMIDE [Interacting]
     Indication: ASCITES
     Dosage: 20 MG, 1X/DAY
     Route: 048
     Dates: start: 20101117, end: 20101228
  2. ALDACTONE [Suspect]
     Indication: ASCITES
     Dosage: 100 MG, 1X/DAY
     Route: 048
     Dates: start: 20081101, end: 20101206
  3. METFORMIN HCL [Concomitant]
     Indication: DIABETES MELLITUS
     Dosage: 2.55 G, 1X/DAY
     Route: 048
     Dates: start: 20060101
  4. FUROSEMIDE [Interacting]
     Dosage: 40 MG, 1X/DAY
     Route: 048
     Dates: start: 20101129, end: 20101206
  5. ASPIRIN [Concomitant]
     Indication: CARDIOVASCULAR EVENT PROPHYLAXIS
     Dosage: 150 MG, 1X/DAY
     Route: 048
  6. OMEPRAZOLE [Concomitant]
     Indication: GASTRITIS PROPHYLAXIS
     Dosage: 20 MG, 1X/DAY
     Route: 048

REACTIONS (2)
  - HEPATIC ENCEPHALOPATHY [None]
  - DRUG INTERACTION [None]
